FAERS Safety Report 9343931 (Version 1)
Quarter: 2013Q2

REPORT INFORMATION
  Report Type: Spontaneous
  Country: None (occurrence: None)
  Receive Date: 20130610
  Receipt Date: 20130610
  Transmission Date: 20140414
  Serious: Yes (Other)
  Sender: FDA-Public Use
  Company Number: 2013P1006686

PATIENT
  Age: 30 Year
  Sex: Male

DRUGS (5)
  1. DIAZEPAM [Suspect]
     Indication: SUICIDE ATTEMPT
  2. ZOLPIDEM [Suspect]
     Indication: SUICIDE ATTEMPT
  3. VENLAFAXINE [Suspect]
     Indication: SUICIDE ATTEMPT
  4. TRAZODONE [Suspect]
     Indication: SUICIDE ATTEMPT
  5. MOCLOBEMIDE [Suspect]

REACTIONS (15)
  - Serotonin syndrome [None]
  - Unresponsive to stimuli [None]
  - Poisoning [None]
  - Blood pressure systolic decreased [None]
  - Heart rate increased [None]
  - Body temperature decreased [None]
  - Renal failure acute [None]
  - Hyperkalaemia [None]
  - Metabolic acidosis [None]
  - Rhabdomyolysis [None]
  - Hyperreflexia [None]
  - Myoclonus [None]
  - Haemodialysis [None]
  - Incorrect dose administered [None]
  - Suicide attempt [None]
